FAERS Safety Report 9563735 (Version 1)
Quarter: 2013Q1

REPORT INFORMATION
  Report Type: Spontaneous
  Country: US (occurrence: None)
  Receive Date: 20121218
  Receipt Date: 20121218
  Transmission Date: 20140127
  Serious: Yes (Death)
  Sender: FDA-Public Use
  Company Number: PHEH2011US012131

PATIENT
  Sex: Male

DRUGS (1)
  1. ZOMETA [Suspect]
     Indication: LUNG CARCINOMA CELL TYPE UNSPECIFIED STAGE 0
     Dosage: 4 MG, EVERY 4 WEEKS, INTRAVENOUS
     Route: 042
     Dates: start: 20110819

REACTIONS (2)
  - Lung neoplasm malignant [None]
  - Neoplasm malignant [None]
